FAERS Safety Report 22136816 (Version 2)
Quarter: 2023Q2

REPORT INFORMATION
  Report Type: Report from Study
  Country: CA (occurrence: None)
  Receive Date: 20230324
  Receipt Date: 20230404
  Transmission Date: 20230722
  Serious: Yes (Other)
  Sender: FDA-Public Use
  Company Number: CA-Merck Healthcare KGaA-9390760

PATIENT
  Age: 36 Year
  Sex: Female

DRUGS (3)
  1. MAVENCLAD [Suspect]
     Active Substance: CLADRIBINE
     Indication: Multiple sclerosis
     Dosage: YEAR ONE WEEK ONE THERAPY: DOSE OF TWO TABLETS ON DAYS 1 TO 4 AND ONE TABLET ON DAY 5.
     Route: 048
     Dates: start: 20220212, end: 20220216
  2. MAVENCLAD [Suspect]
     Active Substance: CLADRIBINE
     Dosage: YEAR ONE WEEK FIVE THERAPY: DOSE OF 2 TABLETS ON DAY 1 TO 4 AND 1 TABLET ON DAY 5
     Route: 048
     Dates: start: 20220316
  3. MAVENCLAD [Suspect]
     Active Substance: CLADRIBINE
     Dosage: YEAR TWO WEEK ONE THERAPY.
     Route: 048

REACTIONS (1)
  - Angina pectoris [Unknown]
